FAERS Safety Report 20895711 (Version 1)
Quarter: 2022Q2

REPORT INFORMATION
  Report Type: Spontaneous
  Country: US (occurrence: US)
  Receive Date: 20220531
  Receipt Date: 20220531
  Transmission Date: 20220721
  Serious: Yes (Other)
  Sender: FDA-Public Use
  Company Number: US-drreddys-LIT/USA/22/0150466

PATIENT
  Age: 76 Year
  Sex: Male

DRUGS (5)
  1. PANTOPRAZOLE [Suspect]
     Active Substance: PANTOPRAZOLE
     Indication: Hiccups
  2. CHLORPROMAZINE [Suspect]
     Active Substance: CHLORPROMAZINE
     Indication: Hiccups
  3. GABAPENTIN [Suspect]
     Active Substance: GABAPENTIN
     Indication: Hiccups
  4. BACLOFEN [Suspect]
     Active Substance: BACLOFEN
     Indication: Hiccups
  5. METOCLOPRAMIDE [Suspect]
     Active Substance: METOCLOPRAMIDE
     Indication: Hiccups

REACTIONS (2)
  - Drug ineffective [Unknown]
  - Off label use [Unknown]
